FAERS Safety Report 12009698 (Version 1)
Quarter: 2016Q1

REPORT INFORMATION
  Report Type: Spontaneous
  Country: US (occurrence: None)
  Receive Date: 20160204
  Receipt Date: 20160204
  Transmission Date: 20160526
  Serious: Yes (Death)
  Sender: FDA-Public Use
  Company Number: None

PATIENT
  Age: 76 Year
  Sex: Male

DRUGS (1)
  1. WARFARIN [Suspect]
     Active Substance: WARFARIN
     Indication: ATRIAL FIBRILLATION
     Route: 048
     Dates: start: 20131018, end: 20160105

REACTIONS (6)
  - Subdural haematoma [None]
  - Haemorrhage intracranial [None]
  - Bronchial secretion retention [None]
  - Acute respiratory failure [None]
  - Unresponsive to stimuli [None]
  - Sepsis [None]

NARRATIVE: CASE EVENT DATE: 20150105
